FAERS Safety Report 13904894 (Version 1)
Quarter: 2017Q3

REPORT INFORMATION
  Report Type: Spontaneous
  Country: US (occurrence: None)
  Receive Date: 20170820
  Receipt Date: 20170820
  Transmission Date: 20171127
  Serious: Yes (Hospitalization)
  Sender: FDA-Public Use
  Company Number: None

PATIENT
  Age: 95 Year
  Sex: Male

DRUGS (1)
  1. WARFARIN [Suspect]
     Active Substance: WARFARIN
     Indication: ATRIAL FIBRILLATION
     Route: 048
     Dates: start: 20050914, end: 20170525

REACTIONS (11)
  - Back injury [None]
  - Fall [None]
  - Limb injury [None]
  - Skin haemorrhage [None]
  - Gastric haemorrhage [None]
  - Contusion [None]
  - Head injury [None]
  - Anaemia [None]
  - Laceration [None]
  - Hypotension [None]
  - Gastrointestinal haemorrhage [None]

NARRATIVE: CASE EVENT DATE: 20170502
